FAERS Safety Report 7234846-1 (Version None)
Quarter: 2011Q1

REPORT INFORMATION
  Report Type: 
  Country: None (occurrence: None)
  Receive Date: 20110114
  Receipt Date: 20110114
  Transmission Date: 20110831
  Serious: Yes (Life-Threatening, Hospitalization)
  Sender: FDA-Public Use
  Company Number: None

PATIENT
  Age: 43 Year
  Sex: Male
  Weight: 68 kg

DRUGS (1)
  1. REOPRO [Suspect]
     Indication: ACUTE MYOCARDIAL INFARCTION
     Dosage: 0.25MG/KG ONCE INTRACORONA, 10 MCG/MIN ONCE IV DRIP
     Dates: start: 20101228, end: 20101228

REACTIONS (1)
  - PLATELET COUNT DECREASED [None]
